FAERS Safety Report 4592930-5 (Version None)
Quarter: 2005Q1

REPORT INFORMATION
  Report Type: 
  Country: None (occurrence: None)
  Receive Date: 20050125
  Receipt Date: 20041108
  Transmission Date: 20050727
  Serious: No
  Sender: FDA-Public Use
  Company Number: USA040876306

PATIENT
  Age: 79 Year
  Sex: Female

DRUGS (3)
  1. FORTEO [Suspect]
     Indication: OSTEOPOROSIS
     Dosage: 20 UG/DAY
     Dates: start: 20040816
  2. ATENIOLOL [Concomitant]
  3. VITAMIN E [Concomitant]

REACTIONS (3)
  - DIZZINESS [None]
  - NERVOUSNESS [None]
  - TREMOR [None]
